FAERS Safety Report 6222075-X (Version None)
Quarter: 2009Q2

REPORT INFORMATION
  Report Type: 
  Country: None (occurrence: None)
  Receive Date: 20090608
  Receipt Date: 20090608
  Transmission Date: 20091009
  Serious: Yes (Life-Threatening, Hospitalization)
  Sender: FDA-Public Use
  Company Number: None

PATIENT
  Age: 14 Year
  Sex: Male
  Weight: 61.6892 kg

DRUGS (1)
  1. CLARAVIS [Suspect]
     Indication: ACNE
     Dosage: 40MG 1 DAILY PO
     Route: 048
     Dates: start: 20090606, end: 20090606

REACTIONS (5)
  - ANAPHYLACTIC SHOCK [None]
  - CHEST PAIN [None]
  - CHILLS [None]
  - MIGRAINE [None]
  - TINNITUS [None]
